FAERS Safety Report 15116408 (Version 4)
Quarter: 2018Q3

REPORT INFORMATION
  Report Type: Spontaneous
  Country: JP (occurrence: JP)
  Receive Date: 20180706
  Receipt Date: 20180725
  Transmission Date: 20181010
  Serious: Yes (Hospitalization)
  Sender: FDA-Public Use
  Company Number: JP-NAPPMUNDI-GBR-2018-0057234

PATIENT
  Age: 73 Year
  Sex: Female

DRUGS (6)
  1. NORSPAN [Suspect]
     Active Substance: BUPRENORPHINE
     Indication: ARTHRALGIA
     Dosage: 5 MCG, Q1H (STRENGTH 5MG PER WEEK)
     Route: 062
     Dates: start: 20180529, end: 20180611
  2. NEUROTROPIN                        /06251301/ [Concomitant]
     Active Substance: ORYCTOLAGUS CUNICULUS SKIN
     Dosage: 4 DF, DAILY
     Route: 048
  3. PRIMPERAN [Suspect]
     Active Substance: METOCLOPRAMIDE HYDROCHLORIDE
     Indication: PRODUCT USED FOR UNKNOWN INDICATION
     Dosage: UNK
     Route: 065
  4. CELECOX [Concomitant]
     Active Substance: CELECOXIB
     Dosage: 4 DF, DAILY
     Route: 048
  5. LYRICA [Suspect]
     Active Substance: PREGABALIN
     Indication: PRODUCT USED FOR UNKNOWN INDICATION
     Dosage: 375 MG, DAILY
     Route: 048
  6. REBAMIPIDE [Concomitant]
     Active Substance: REBAMIPIDE
     Dosage: UNK UNK, UNK
     Route: 065

REACTIONS (7)
  - Feeling abnormal [Recovering/Resolving]
  - Extrapyramidal disorder [Unknown]
  - Fall [Unknown]
  - Parkinson^s disease [Unknown]
  - Spinal compression fracture [Unknown]
  - Dizziness [Recovering/Resolving]
  - Tremor [Recovering/Resolving]

NARRATIVE: CASE EVENT DATE: 20180611
